FAERS Safety Report 17192186 (Version 2)
Quarter: 2020Q1

REPORT INFORMATION
  Report Type: Report from Study
  Country: KR (occurrence: KR)
  Receive Date: 20191223
  Receipt Date: 20200109
  Transmission Date: 20200409
  Serious: Yes (Hospitalization)
  Sender: FDA-Public Use
  Company Number: KR-ELI_LILLY_AND_COMPANY-KR201912007751

PATIENT
  Age: 73 Year
  Sex: Male
  Weight: 77 kg

DRUGS (12)
  1. RAMUCIRUMAB [Suspect]
     Active Substance: RAMUCIRUMAB
     Indication: GASTRIC CANCER
     Dosage: 8 MG/KG, MONTHLY (1/M)
     Route: 042
     Dates: start: 20190306, end: 20191106
  2. PLATLESS [Concomitant]
     Active Substance: CLOPIDOGREL BISULFATE
     Indication: PROPHYLAXIS
     Dosage: UNK
     Dates: start: 20190805
  3. LASIX [Concomitant]
     Active Substance: FUROSEMIDE
     Indication: HYPERTENSION
     Dosage: UNK
     Dates: start: 20190805
  4. NEUSTATIN R [Concomitant]
     Indication: DYSLIPIDAEMIA
     Dosage: UNK
     Dates: start: 20190805
  5. SENSIVAL [Concomitant]
     Indication: HEADACHE
     Dosage: UNK
     Dates: start: 20191104
  6. RAMUCIRUMAB [Suspect]
     Active Substance: RAMUCIRUMAB
     Dosage: 8 MG/KG, MONTHLY (1/M)
     Route: 042
     Dates: start: 20191129
  7. MENIACE [Concomitant]
     Indication: PROPHYLAXIS
     Dosage: UNK
     Dates: start: 20190819
  8. PACLITAXEL. [Concomitant]
     Active Substance: PACLITAXEL
     Indication: GASTRIC CANCER
     Dosage: 80 MG/M2, WEEKLY (1/W)
     Route: 042
     Dates: start: 20190306, end: 20191106
  9. ASPIRIN. [Concomitant]
     Active Substance: ASPIRIN
     Indication: PROPHYLAXIS
     Dosage: UNK
     Dates: start: 20190808
  10. MUCOSTA [Concomitant]
     Active Substance: REBAMIPIDE
     Indication: GASTRIC ULCER
     Dosage: UNK
     Dates: start: 20190923
  11. SPIROZIDE [Concomitant]
     Indication: HYPERTENSION
     Dosage: UNK
     Dates: start: 20190805
  12. PREORIN [Concomitant]
     Indication: NEUROPATHY PERIPHERAL
     Dosage: UNK
     Dates: start: 20191010

REACTIONS (2)
  - Neutropenia [Recovered/Resolved]
  - Abdominal pain upper [Recovered/Resolved]

NARRATIVE: CASE EVENT DATE: 20191106
